FAERS Safety Report 9613670 (Version 2)
Quarter: 2013Q4

REPORT INFORMATION
  Report Type: Spontaneous
  Country: US (occurrence: US)
  Receive Date: 20131010
  Receipt Date: 20131105
  Transmission Date: 20140711
  Serious: Yes (Hospitalization, Other)
  Sender: FDA-Public Use
  Company Number: US-BAXTER-2013BAX039184

PATIENT
  Age: 64 Year
  Sex: Male

DRUGS (5)
  1. DIANEAL LOW CALCIUM (ULTRABAG) [Suspect]
     Indication: PERITONEAL DIALYSIS
     Route: 033
     Dates: start: 20100624
  2. DIANEAL LOW CALCIUM (ULTRABAG) [Suspect]
     Route: 033
     Dates: start: 20130509
  3. DIANEAL LOW CALCIUM (ULTRABAG) [Suspect]
     Indication: PERITONEAL DIALYSIS
     Route: 033
     Dates: start: 20100624
  4. DIANEAL LOW CALCIUM (ULTRABAG) [Suspect]
     Route: 033
     Dates: start: 20130509
  5. ASPIRIN [Concomitant]
     Indication: PRODUCT USED FOR UNKNOWN INDICATION

REACTIONS (6)
  - Gastrointestinal disorder [Unknown]
  - Anaemia [Unknown]
  - Oesophagitis [Unknown]
  - Hyperparathyroidism [Unknown]
  - Peritonitis bacterial [Recovered/Resolved]
  - Constipation [Recovered/Resolved]
